FAERS Safety Report 17322107 (Version 1)
Quarter: 2020Q1

REPORT INFORMATION
  Report Type: Other
  Country: None (occurrence: US)
  Receive Date: 20200127
  Receipt Date: 20200127
  Transmission Date: 20200409
  Serious: No
  Sender: FDA-Public Use
  Company Number: US-ACORDA-ACO_160455_2019

PATIENT
  Sex: Female

DRUGS (1)
  1. AMPYRA [Suspect]
     Active Substance: DALFAMPRIDINE
     Indication: PRODUCT USED FOR UNKNOWN INDICATION
     Dosage: 10 MILLIGRAM, BID (Q12H)
     Route: 048
     Dates: start: 20190720

REACTIONS (6)
  - Hypoaesthesia [Unknown]
  - Temperature intolerance [Unknown]
  - Pollakiuria [Not Recovered/Not Resolved]
  - Contraindicated product administered [Unknown]
  - Humidity intolerance [Unknown]
  - Dysstasia [Unknown]
